FAERS Safety Report 5588398-2 (Version None)
Quarter: 2008Q1

REPORT INFORMATION
  Report Type: 
  Country: None (occurrence: None)
  Receive Date: 20080111
  Receipt Date: 20071108
  Transmission Date: 20080703
  Serious: No
  Sender: FDA-Public Use
  Company Number: A0692986A

PATIENT
  Age: 39 Year
  Sex: Female

DRUGS (4)
  1. TYKERB [Suspect]
     Indication: METASTASIS
     Dosage: 5TAB PER DAY
     Route: 048
     Dates: start: 20071029
  2. XELODA [Suspect]
     Indication: METASTASIS
     Dosage: 3TAB TWICE PER DAY
     Dates: start: 20071024
  3. DEXAMETHASONE TAB [Concomitant]
  4. CHANTIX [Concomitant]

REACTIONS (4)
  - HYPOAESTHESIA [None]
  - MIDDLE INSOMNIA [None]
  - MUSCLE SPASMS [None]
  - PARAESTHESIA [None]
